FAERS Safety Report 8552769 (Version 3)
Quarter: 2013Q1

REPORT INFORMATION
  Report Type: Report from Study
  Country: DE (occurrence: DE)
  Receive Date: 20120508
  Receipt Date: 20130211
  Transmission Date: 20140127
  Serious: Yes (Other)
  Sender: FDA-Public Use
  Company Number: DE-ROCHE-1065527

PATIENT
  Age: 60 Year
  Sex: Male
  Weight: 77 kg

DRUGS (5)
  1. PEG-INTERFERON ALFA 2A [Suspect]
     Indication: CHRONIC HEPATITIS C
     Route: 058
     Dates: start: 20110928
  2. RIBAVIRIN [Suspect]
     Indication: CHRONIC HEPATITIS C
     Route: 048
     Dates: start: 20110928
  3. BLINDED BI 201335 [Suspect]
     Indication: CHRONIC HEPATITIS C
     Route: 065
     Dates: start: 20110928
  4. AMOXICLAV [Concomitant]
     Indication: INFLAMMATION
     Dosage: 1500/375 MG DAILY
     Route: 065
     Dates: start: 20111011, end: 20111018
  5. TORASEMIDE [Concomitant]
     Indication: HYPERTENSION
     Route: 065
     Dates: end: 20110930

REACTIONS (2)
  - Rash [Recovered/Resolved]
  - Photosensitivity reaction [Recovered/Resolved]
